FAERS Safety Report 11834475 (Version 1)
Quarter: 2015Q4

REPORT INFORMATION
  Report Type: Spontaneous
  Country: BR (occurrence: BR)
  Receive Date: 20151214
  Receipt Date: 20151214
  Transmission Date: 20160305
  Serious: Yes (Life-Threatening)
  Sender: FDA-Public Use
  Company Number: BR-ROCHE-1676190

PATIENT
  Age: 58 Year
  Sex: Female
  Weight: 90 kg

DRUGS (1)
  1. XOLAIR [Suspect]
     Active Substance: OMALIZUMAB
     Indication: CHRONIC OBSTRUCTIVE PULMONARY DISEASE
     Dosage: DID NOT RECEIVE OMALIZUMAB SINCE 25/NOV/2015
     Route: 065

REACTIONS (4)
  - Asthenia [Not Recovered/Not Resolved]
  - Dysstasia [Unknown]
  - Product use issue [Unknown]
  - Chronic obstructive pulmonary disease [Not Recovered/Not Resolved]
